FAERS Safety Report 13587185 (Version 1)
Quarter: 2017Q2

REPORT INFORMATION
  Report Type: Spontaneous
  Country: US (occurrence: US)
  Receive Date: 20170526
  Receipt Date: 20170526
  Transmission Date: 20170830
  Serious: No
  Sender: FDA-Public Use
  Company Number: US-MIST-STN-2016-0132

PATIENT
  Age: 66 Year
  Sex: Male
  Weight: 74.91 kg

DRUGS (1)
  1. STENDRA [Suspect]
     Active Substance: AVANAFIL
     Indication: ERECTILE DYSFUNCTION
     Dosage: ONE TABLET AS NEEDED APPROXIMATELY ONE HOUR PRIOR TO SEXUAL INTERCOURSE
     Dates: start: 201611

REACTIONS (4)
  - Intentional product misuse [Unknown]
  - Erectile dysfunction [Unknown]
  - Wrong technique in product usage process [Unknown]
  - Drug ineffective [Unknown]

NARRATIVE: CASE EVENT DATE: 2016
